FAERS Safety Report 25299370 (Version 1)
Quarter: 2025Q2

REPORT INFORMATION
  Report Type: Spontaneous
  Country: TR (occurrence: TR)
  Receive Date: 20250512
  Receipt Date: 20250512
  Transmission Date: 20250716
  Serious: Yes (Other)
  Sender: NOVITIUM PHARMA
  Company Number: TR-NOVITIUMPHARMA-2025TRNVP01114

PATIENT
  Age: 34 Year
  Sex: Male

DRUGS (9)
  1. SULFAMETHOXAZOLE\TRIMETHOPRIM [Suspect]
     Active Substance: SULFAMETHOXAZOLE\TRIMETHOPRIM
     Indication: Antifungal prophylaxis
  2. CYTARABINE [Concomitant]
     Active Substance: CYTARABINE
     Indication: Chemotherapy
  3. CYTARABINE [Concomitant]
     Active Substance: CYTARABINE
     Indication: Central nervous system immune reconstitution inflammatory response
  4. DAUNORUBICIN [Concomitant]
     Active Substance: DAUNORUBICIN
     Indication: Chemotherapy
  5. MITOXANTRONE [Concomitant]
     Active Substance: MITOXANTRONE HYDROCHLORIDE
     Indication: Product used for unknown indication
  6. METHOTREXATE [Concomitant]
     Active Substance: METHOTREXATE
     Indication: Central nervous system immune reconstitution inflammatory response
  7. METHOTREXATE [Concomitant]
     Active Substance: METHOTREXATE
     Indication: Prophylaxis against graft versus host disease
  8. DEXAMETHASONE [Concomitant]
     Active Substance: DEXAMETHASONE
     Indication: Central nervous system immune reconstitution inflammatory response
  9. CYCLOSPORINE [Concomitant]
     Active Substance: CYCLOSPORINE
     Indication: Prophylaxis against graft versus host disease

REACTIONS (1)
  - Acute graft versus host disease in skin [Recovered/Resolved]
